FAERS Safety Report 24556646 (Version 1)
Quarter: 2024Q4

REPORT INFORMATION
  Report Type: Spontaneous
  Country: BR (occurrence: BR)
  Receive Date: 20241028
  Receipt Date: 20241028
  Transmission Date: 20250115
  Serious: Yes (Other)
  Sender: GLAXOSMITHKLINE
  Company Number: BR-GLAXOSMITHKLINE INC-BR2024AMR131132

PATIENT

DRUGS (1)
  1. NUCALA [Suspect]
     Active Substance: MEPOLIZUMAB
     Indication: Asthma
     Dosage: 100 MG, Q4W
     Route: 058
     Dates: start: 20230721

REACTIONS (4)
  - Gastric operation [Recovered/Resolved]
  - Influenza [Recovered/Resolved]
  - Coronavirus infection [Not Recovered/Not Resolved]
  - Intentional dose omission [Unknown]
